FAERS Safety Report 4951004-1 (Version None)
Quarter: 2006Q1

REPORT INFORMATION
  Report Type: 
  Country: None (occurrence: None)
  Receive Date: 20060315
  Receipt Date: 20060216
  Transmission Date: 20060701
  Serious: Yes (Other)
  Sender: FDA-Public Use
  Company Number: ES200602003277

PATIENT
  Age: 21 Year
  Sex: Female

DRUGS (1)
  1. HUMATROPE [Suspect]
     Indication: TURNER'S SYNDROME
     Dosage: 0.025MG/KG DAILY (1/D) SUBCUTANEOUS
     Route: 058

REACTIONS (5)
  - ANTI-THYROID ANTIBODY POSITIVE [None]
  - AUTOIMMUNE THYROIDITIS [None]
  - BLOOD THYROID STIMULATING HORMONE INCREASED [None]
  - FREE THYROXINE INDEX DECREASED [None]
  - PAPILLARY THYROID CANCER [None]
